FAERS Safety Report 7782518-7 (Version None)
Quarter: 2011Q3

REPORT INFORMATION
  Report Type: 
  Country: None (occurrence: None)
  Receive Date: 20110928
  Receipt Date: 20110915
  Transmission Date: 20111222
  Serious: Yes (Hospitalization)
  Sender: FDA-Public Use
  Company Number: CH-ELI_LILLY_AND_COMPANY-CH201109006798

PATIENT
  Age: 48 Year
  Sex: Female

DRUGS (11)
  1. RISPERDAL [Concomitant]
     Dosage: 4 MG, QD
     Route: 048
     Dates: start: 20110323, end: 20110330
  2. TRILEPTAL [Concomitant]
     Dosage: 300 MG, QD
     Route: 048
     Dates: start: 20110305, end: 20110315
  3. RISPERDAL [Concomitant]
     Dosage: 3 MG, QD
     Route: 048
     Dates: start: 20110309, end: 20110313
  4. LAMICTAL [Concomitant]
     Dosage: 200 MG, QD
     Route: 048
     Dates: start: 20110324
  5. RISPERDAL [Concomitant]
     Dosage: 6 MG, QD
     Route: 048
     Dates: start: 20110331
  6. RISPERDAL [Concomitant]
     Dosage: 6 MG, QD
     Route: 048
     Dates: end: 20110308
  7. LAMICTAL [Concomitant]
     Dosage: 150 MG, QD
     Route: 048
     Dates: start: 20110316, end: 20110323
  8. ZYPREXA [Suspect]
     Dosage: 20 MG, QD
     Route: 048
     Dates: start: 20110301, end: 20110322
  9. LAMICTAL [Concomitant]
     Dosage: 100 MG, QD
     Route: 048
     Dates: start: 20110304, end: 20110315
  10. ZYPREXA [Suspect]
     Dosage: 10 MG, QD
     Route: 048
     Dates: start: 20110311, end: 20110301
  11. RISPERDAL [Concomitant]
     Dosage: 2 MG, QD
     Route: 048
     Dates: start: 20110314, end: 20110322

REACTIONS (4)
  - DELUSION [None]
  - INSOMNIA [None]
  - COGNITIVE DISORDER [None]
  - RESTLESSNESS [None]
